FAERS Safety Report 4808301-X (Version None)
Quarter: 2005Q4

REPORT INFORMATION
  Report Type: 
  Country: None (occurrence: None)
  Receive Date: 20051021
  Receipt Date: 20020810
  Transmission Date: 20060501
  Serious: No
  Sender: FDA-Public Use
  Company Number: EWC020832010

PATIENT
  Age: 22 Year
  Sex: Female
  Weight: 50 kg

DRUGS (2)
  1. ZYPREXA [Suspect]
     Indication: SCHIZOPHRENIA
     Dosage: 15 MG
     Dates: start: 20020402, end: 20020712
  2. ANALGIN [Concomitant]

REACTIONS (4)
  - FATIGUE [None]
  - LYMPHOCYTE COUNT INCREASED [None]
  - RED BLOOD CELL SEDIMENTATION RATE INCREASED [None]
  - WHITE BLOOD CELL COUNT DECREASED [None]
